FAERS Safety Report 14768786 (Version 1)
Quarter: 2018Q2

REPORT INFORMATION
  Report Type: Report from Study
  Country: US (occurrence: US)
  Receive Date: 20180417
  Receipt Date: 20180417
  Transmission Date: 20180711
  Serious: Yes (Death)
  Sender: FDA-Public Use
  Company Number: US-AUROBINDO-AUR-APL-2018-020689

PATIENT
  Age: 31 Year
  Sex: Female

DRUGS (1)
  1. ACETAMINOPHEN. [Suspect]
     Active Substance: ACETAMINOPHEN
     Indication: PRODUCT USED FOR UNKNOWN INDICATION
     Route: 065

REACTIONS (13)
  - Tachycardia [Fatal]
  - Pancreatitis [Fatal]
  - Haemolysis [Fatal]
  - Brain death [Fatal]
  - Anion gap [Fatal]
  - Depressed level of consciousness [Fatal]
  - Coagulopathy [Fatal]
  - Acute kidney injury [Fatal]
  - Coma [Fatal]
  - Osmolar gap [Fatal]
  - Toxicity to various agents [Fatal]
  - Seizure [Fatal]
  - Metabolic acidosis [Fatal]
